FAERS Safety Report 7444690-8 (Version None)
Quarter: 2011Q2

REPORT INFORMATION
  Report Type: 
  Country: None (occurrence: None)
  Receive Date: 20110429
  Receipt Date: 20110420
  Transmission Date: 20111010
  Serious: Yes (Hospitalization)
  Sender: FDA-Public Use
  Company Number: NO-NOVOPROD-326801

PATIENT
  Sex: Male

DRUGS (6)
  1. METFORMIN HYDROCHLORIDE [Concomitant]
  2. SIMVASTATIN [Concomitant]
  3. VICTOZA [Suspect]
     Indication: DIABETES MELLITUS
     Dosage: UNK
     Dates: start: 20110224, end: 20110403
  4. AMARYL [Concomitant]
  5. ALBYL-E [Concomitant]
  6. OMACOR                             /06312301/ [Concomitant]

REACTIONS (1)
  - PANCREATITIS [None]
